FAERS Safety Report 19645130 (Version 1)
Quarter: 2021Q3

REPORT INFORMATION
  Report Type: Report from Study
  Country: ES (occurrence: ES)
  Receive Date: 20210802
  Receipt Date: 20210802
  Transmission Date: 20211014
  Serious: Yes (Death, Hospitalization)
  Sender: FDA-Public Use
  Company Number: ES-TEVA-2021-ES-1937448

PATIENT
  Age: 74 Year
  Sex: Male

DRUGS (5)
  1. TOCILIZUMAB (8289A) [Suspect]
     Active Substance: TOCILIZUMAB
     Indication: COVID-19
     Dosage: 560MILLIGRAM
     Route: 042
     Dates: start: 20200328, end: 20200328
  2. METILPREDNISOLONA (888A) [Suspect]
     Active Substance: METHYLPREDNISOLONE
     Indication: COVID-19
     Dosage: 160MILLIGRAM
     Route: 042
     Dates: start: 20200327, end: 20200331
  3. HIDROXICLOROQUINA SULFATO (2143SU) [Suspect]
     Active Substance: HYDROXYCHLOROQUINE SULFATE
     Indication: COVID-19
     Dosage: 3.2GRAM
     Route: 048
     Dates: start: 20200324, end: 20200331
  4. ENOXAPARINA SODICA (2482SO) [Suspect]
     Active Substance: ENOXAPARIN SODIUM
     Dosage: 80MILLIGRAM
     Route: 058
     Dates: start: 20200328, end: 20200331
  5. LOPINAVIR + RITONAVIR [Suspect]
     Active Substance: LOPINAVIR\RITONAVIR
     Indication: COVID-19
     Dosage: 800MILLIGRAM
     Route: 048
     Dates: start: 20200331, end: 20200331

REACTIONS (1)
  - Hepatic cytolysis [Recovered/Resolved]

NARRATIVE: CASE EVENT DATE: 20200401
